FAERS Safety Report 10260317 (Version 1)
Quarter: 2014Q2

REPORT INFORMATION
  Report Type: Spontaneous
  Country: US (occurrence: US)
  Receive Date: 20140625
  Receipt Date: 20140625
  Transmission Date: 20141212
  Serious: No
  Sender: FDA-Public Use
  Company Number: US-SA-2014SA066288

PATIENT
  Age: 65 Year
  Sex: Female

DRUGS (2)
  1. AUBAGIO [Suspect]
     Indication: MULTIPLE SCLEROSIS
     Dosage: STRENGTH 7 MG
     Route: 048
     Dates: start: 20140329, end: 20140408
  2. TYSABRI [Concomitant]

REACTIONS (7)
  - Pain [Unknown]
  - Visual impairment [Unknown]
  - Gait disturbance [Unknown]
  - Flushing [Unknown]
  - Erythema [Unknown]
  - Skin tightness [Unknown]
  - Heart rate increased [Unknown]
